FAERS Safety Report 9144565 (Version 2)
Quarter: 2013Q2

REPORT INFORMATION
  Report Type: Spontaneous
  Country: FR (occurrence: FR)
  Receive Date: 20130306
  Receipt Date: 20130410
  Transmission Date: 20140414
  Serious: Yes (Hospitalization)
  Sender: FDA-Public Use
  Company Number: FR-LUNDBECK-DKLU1089201

PATIENT
  Age: 12 Year
  Sex: Female

DRUGS (4)
  1. ONFI [Suspect]
     Indication: EPILEPSY
     Route: 048
     Dates: start: 201008
  2. MICROPAKINE [Suspect]
     Indication: EPILEPSY
     Route: 048
     Dates: start: 201008
  3. EPITOMAX [Suspect]
     Indication: EPILEPSY
     Route: 048
     Dates: start: 201211, end: 20130207
  4. VALIUM [Suspect]
     Indication: ANXIETY
     Route: 048

REACTIONS (3)
  - Weight decreased [Not Recovered/Not Resolved]
  - Thrombocytopenia [Unknown]
  - Decreased appetite [Not Recovered/Not Resolved]
